FAERS Safety Report 8323251-2 (Version None)
Quarter: 2012Q2

REPORT INFORMATION
  Report Type: 
  Country: None (occurrence: None)
  Receive Date: 20120430
  Receipt Date: 20120416
  Transmission Date: 20120825
  Serious: Yes (Other)
  Sender: FDA-Public Use
  Company Number: CHPA2012US009394

PATIENT
  Age: 76 Year
  Sex: Male

DRUGS (2)
  1. EXCEDRIN (MIGRAINE) [Suspect]
     Indication: HANGOVER
     Dosage: 2 DF, AT NIGHT
     Route: 048
     Dates: start: 20020101
  2. ASPIRIN [Concomitant]
     Dosage: 81 MG, UNK
     Dates: start: 20020101

REACTIONS (3)
  - ARTHRITIS [None]
  - OFF LABEL USE [None]
  - BLOOD CHOLESTEROL [None]
